FAERS Safety Report 20070996 (Version 1)
Quarter: 2021Q4

REPORT INFORMATION
  Report Type: Spontaneous
  Country: JP (occurrence: JP)
  Receive Date: 20211115
  Receipt Date: 20211115
  Transmission Date: 20220303
  Serious: Yes (Hospitalization)
  Sender: FDA-Public Use
  Company Number: JP-NOVARTISPH-NVSC2021JP259974

PATIENT
  Age: 88 Year
  Sex: Female

DRUGS (1)
  1. RECLAST [Suspect]
     Active Substance: ZOLEDRONIC ACID
     Indication: Product used for unknown indication
     Dosage: 5 MG, Q12MO (ONCE YEARLY) STARTED TWO YEARS BEFORE
     Route: 041

REACTIONS (4)
  - Foot fracture [Recovered/Resolved]
  - Fall [Recovered/Resolved]
  - Cataract [Not Recovered/Not Resolved]
  - Tooth disorder [Unknown]
